FAERS Safety Report 19788147 (Version 1)
Quarter: 2021Q3

REPORT INFORMATION
  Report Type: Spontaneous
  Country: US (occurrence: US)
  Receive Date: 20210903
  Receipt Date: 20210903
  Transmission Date: 20211014
  Serious: No
  Sender: FDA-Public Use
  Company Number: US-HARMONY BIOSCIENCES-2021HMY01055

PATIENT
  Age: 43 Year
  Sex: Female
  Weight: 116.55 kg

DRUGS (22)
  1. TOPAMAX [Concomitant]
     Active Substance: TOPIRAMATE
  2. KCL [Concomitant]
     Active Substance: POTASSIUM CHLORIDE
  3. BUSPIRONE [Concomitant]
     Active Substance: BUSPIRONE HYDROCHLORIDE
  4. FLUOXETINE [Concomitant]
     Active Substance: FLUOXETINE HYDROCHLORIDE
  5. TURMERIC [Concomitant]
     Active Substance: HERBALS\TURMERIC
  6. WAKIX [Suspect]
     Active Substance: PITOLISANT HYDROCHLORIDE
     Dosage: 17.8 MG, 1X/DAY IN THE MORNING
     Route: 048
     Dates: start: 20210604, end: 20210607
  7. MVI [Concomitant]
     Active Substance: VITAMINS
  8. SUDAFED [Concomitant]
     Active Substance: PSEUDOEPHEDRINE HYDROCHLORIDE
  9. MAP [Concomitant]
  10. MUCINEX [Concomitant]
     Active Substance: GUAIFENESIN
  11. ACIDOPHILUS [Concomitant]
     Active Substance: LACTOBACILLUS ACIDOPHILUS
  12. MONTELUKAST [Concomitant]
     Active Substance: MONTELUKAST SODIUM
  13. BREO ELLIPTA [Concomitant]
     Active Substance: FLUTICASONE FUROATE\VILANTEROL TRIFENATATE
  14. VIT D [Concomitant]
     Active Substance: VITAMIN D NOS
  15. GABAPENTIN. [Concomitant]
     Active Substance: GABAPENTIN
  16. SKELAXIN [Concomitant]
     Active Substance: METAXALONE
  17. WAKIX [Suspect]
     Active Substance: PITOLISANT HYDROCHLORIDE
     Indication: HYPERSOMNIA
     Dosage: 8.9 MG, 1X/DAY IN THE MORNING
     Route: 048
     Dates: start: 20210528, end: 20210603
  18. FISH OIL [Concomitant]
     Active Substance: FISH OIL
  19. FLONASE [Concomitant]
     Active Substance: FLUTICASONE PROPIONATE
  20. NIZORAL [Concomitant]
     Active Substance: KETOCONAZOLE
  21. ZYRTEC [Concomitant]
     Active Substance: CETIRIZINE HYDROCHLORIDE
  22. PRILOSEC [Concomitant]
     Active Substance: OMEPRAZOLE MAGNESIUM

REACTIONS (5)
  - Dysarthria [Recovered/Resolved]
  - Facial paralysis [Recovered/Resolved]
  - Tremor [Recovered/Resolved]
  - Off label use [Recovered/Resolved]
  - Lethargy [Recovered/Resolved]

NARRATIVE: CASE EVENT DATE: 20210528
